FAERS Safety Report 17048423 (Version 1)
Quarter: 2019Q4

REPORT INFORMATION
  Report Type: Spontaneous
  Country: US (occurrence: US)
  Receive Date: 20191118
  Receipt Date: 20191118
  Transmission Date: 20200122
  Serious: Yes (Other)
  Sender: FDA-Public Use
  Company Number: None

PATIENT
  Sex: Female

DRUGS (12)
  1. RILUZOLE. [Suspect]
     Active Substance: RILUZOLE
     Indication: AMYOTROPHIC LATERAL SCLEROSIS
     Route: 048
     Dates: start: 20191024
  2. CRESTPR [Concomitant]
  3. BENTYL [Concomitant]
     Active Substance: DICYCLOMINE HYDROCHLORIDE
  4. KLONOPIN [Concomitant]
     Active Substance: CLONAZEPAM
  5. RADICAVA [Concomitant]
     Active Substance: EDARAVONE
  6. LIPITOR [Concomitant]
     Active Substance: ATORVASTATIN CALCIUM
  7. VITAMIN E [Concomitant]
     Active Substance: .ALPHA.-TOCOPHEROL
  8. SYNTHROID [Concomitant]
     Active Substance: LEVOTHYROXINE SODIUM
  9. LOSARTAN. [Concomitant]
     Active Substance: LOSARTAN
  10. RILUTEK [Concomitant]
     Active Substance: RILUZOLE
  11. CELEBREX [Concomitant]
     Active Substance: CELECOXIB
  12. PEPCID [Concomitant]
     Active Substance: FAMOTIDINE

REACTIONS (2)
  - Transient ischaemic attack [None]
  - Fatigue [None]
